FAERS Safety Report 18852973 (Version 1)
Quarter: 2021Q1

REPORT INFORMATION
  Report Type: Report from Study
  Country: US (occurrence: US)
  Receive Date: 20210205
  Receipt Date: 20210205
  Transmission Date: 20210420
  Serious: Yes (Other)
  Sender: FDA-Public Use
  Company Number: US-MYLANLABS-2021M1007146

PATIENT
  Age: 30 Year

DRUGS (8)
  1. CLADRIBINE. [Suspect]
     Active Substance: CLADRIBINE
     Indication: BLAST CELL CRISIS
  2. VENETOCLAX. [Suspect]
     Active Substance: VENETOCLAX
     Indication: BLAST CELL CRISIS
  3. DASATINIB. [Suspect]
     Active Substance: DASATINIB
     Indication: BLAST CELL CRISIS
  4. CYTARABINE. [Suspect]
     Active Substance: CYTARABINE
     Indication: CHRONIC MYELOID LEUKAEMIA
     Dosage: 1000 MILLIGRAM/SQ. METER, QD....
     Route: 042
  5. DASATINIB. [Suspect]
     Active Substance: DASATINIB
     Indication: CHRONIC MYELOID LEUKAEMIA
     Dosage: UNK
     Route: 065
  6. CLADRIBINE. [Suspect]
     Active Substance: CLADRIBINE
     Indication: CHRONIC MYELOID LEUKAEMIA
     Dosage: 5 MILLIGRAM/SQ. METER
     Route: 065
  7. VENETOCLAX. [Suspect]
     Active Substance: VENETOCLAX
     Indication: CHRONIC MYELOID LEUKAEMIA
     Dosage: 400 MILLIGRAM, QD
     Route: 065
  8. CYTARABINE. [Suspect]
     Active Substance: CYTARABINE
     Indication: BLAST CELL CRISIS

REACTIONS (1)
  - Drug ineffective [Unknown]
